FAERS Safety Report 8470227-0 (Version None)
Quarter: 2012Q2

REPORT INFORMATION
  Report Type: 
  Country: None (occurrence: None)
  Receive Date: 20120621
  Receipt Date: 20120621
  Transmission Date: 20120825
  Serious: Yes (Hospitalization)
  Sender: FDA-Public Use
  Company Number: None

PATIENT
  Age: 64 Year
  Sex: Male
  Weight: 102 kg

DRUGS (2)
  1. CARBAMAZEPINE [Suspect]
     Indication: BIPOLAR DISORDER
     Dates: start: 20120310, end: 20120527
  2. LAMICTAL [Suspect]
     Indication: BIPOLAR DISORDER
     Dates: start: 20120522, end: 20120527

REACTIONS (11)
  - HYPOGLYCAEMIA [None]
  - RASH [None]
  - RENAL FAILURE ACUTE [None]
  - VISUAL IMPAIRMENT [None]
  - INTERNATIONAL NORMALISED RATIO INCREASED [None]
  - ATAXIA [None]
  - WHITE BLOOD CELL COUNT INCREASED [None]
  - JAUNDICE [None]
  - HYPERTENSION [None]
  - HYPOPHAGIA [None]
  - HEPATIC FAILURE [None]
